FAERS Safety Report 24810578 (Version 1)
Quarter: 2025Q1

REPORT INFORMATION
  Report Type: Spontaneous
  Country: US (occurrence: US)
  Receive Date: 20250106
  Receipt Date: 20250106
  Transmission Date: 20250408
  Serious: No
  Sender: DR REDDYS
  Company Number: None

PATIENT
  Age: 37 Year
  Sex: Male

DRUGS (5)
  1. CLOZAPINE [Suspect]
     Active Substance: CLOZAPINE
     Indication: Schizophrenia
     Dosage: DAYS OF THERAPY 0 TO 101
  2. CLOZAPINE [Suspect]
     Active Substance: CLOZAPINE
     Dosage: DAYS OF THERAPY 102 TO 125
  3. CLOZAPINE [Suspect]
     Active Substance: CLOZAPINE
     Dosage: DAYS OF THERAPY 126 TO 576
  4. CLOZAPINE [Suspect]
     Active Substance: CLOZAPINE
     Dosage: DAYS OF THERAPY 577 TO 1354
  5. CLOZAPINE [Suspect]
     Active Substance: CLOZAPINE
     Dosage: DAYS OF THERAPY 1355 TO DAYS OF 1491

REACTIONS (1)
  - Eosinopenia [Unknown]
